FAERS Safety Report 20360053 (Version 2)
Quarter: 2022Q1

REPORT INFORMATION
  Report Type: Spontaneous
  Country: CA (occurrence: CA)
  Receive Date: 20220121
  Receipt Date: 20220211
  Transmission Date: 20220423
  Serious: Yes (Other)
  Sender: FDA-Public Use
  Company Number: CA-MLMSERVICE-20220111-3310853-3

PATIENT
  Age: 39 Year
  Sex: Female

DRUGS (11)
  1. ESCITALOPRAM [Interacting]
     Active Substance: ESCITALOPRAM OXALATE
     Indication: Anxiety
     Dosage: 7.5 MILLIGRAM, ONCE A DAY
     Route: 048
     Dates: start: 201810
  2. ESCITALOPRAM [Interacting]
     Active Substance: ESCITALOPRAM OXALATE
     Indication: Depression
     Dosage: 5 MILLIGRAM, ONCE A DAY
     Route: 048
     Dates: start: 201810
  3. SUMATRIPTAN [Interacting]
     Active Substance: SUMATRIPTAN
     Indication: Migraine prophylaxis
     Dosage: 100 MILLIGRAM (AS NEEDED, DAILY)
     Route: 048
     Dates: start: 201701
  4. SUMATRIPTAN [Interacting]
     Active Substance: SUMATRIPTAN
     Indication: Migraine
  5. PROMETHAZINE [Concomitant]
     Active Substance: PROMETHAZINE HYDROCHLORIDE
     Indication: Migraine
     Dosage: 25 MILLIGRAM (AS NEEDED, DAILY)
     Route: 048
  6. ZOLPIDEM [Concomitant]
     Active Substance: ZOLPIDEM TARTRATE
     Indication: Insomnia
     Dosage: 5 MILLIGRAM (AS NEEDED, AT BEDTIME)
     Route: 048
  7. VITAMIN C [Concomitant]
     Active Substance: ASCORBIC ACID
     Indication: Nutritional supplementation
     Dosage: 125 MILLIGRAM, TWO TIMES A DAY
     Route: 048
  8. ETHINYL ESTRADIOL\LEVONORGESTREL [Concomitant]
     Active Substance: ETHINYL ESTRADIOL\LEVONORGESTREL
     Indication: Hormonal contraception
     Dosage: UNK UNK, ONCE A DAY
     Route: 048
  9. LORATADINE\PSEUDOEPHEDRINE SULFATE [Concomitant]
     Active Substance: LORATADINE\PSEUDOEPHEDRINE SULFATE
     Indication: Rhinitis allergic
     Dosage: UNK (DAILY AS NEEDED, USED ONCE OR TWICE A WEEK)
     Route: 048
  10. KETOROLAC [Concomitant]
     Active Substance: KETOROLAC TROMETHAMINE
     Indication: Migraine
     Dosage: 10 MILLIGRAM (AS NEEDED, DAILY)
     Route: 048
  11. VITAMIN D [Concomitant]
     Active Substance: VITAMIN D NOS
     Indication: Nutritional supplementation
     Dosage: 2000 INTERNATIONAL UNIT, ONCE A DAY (DROPS)
     Route: 048

REACTIONS (5)
  - Drug interaction [Unknown]
  - Condition aggravated [Unknown]
  - Depressive symptom [Unknown]
  - Depressed mood [Unknown]
  - Drug-disease interaction [Unknown]

NARRATIVE: CASE EVENT DATE: 20180101
